FAERS Safety Report 10208088 (Version 1)
Quarter: 2014Q2

REPORT INFORMATION
  Report Type: Report from Study
  Country: MX (occurrence: MX)
  Receive Date: 20140530
  Receipt Date: 20140530
  Transmission Date: 20141212
  Serious: Yes (Other)
  Sender: FDA-Public Use
  Company Number: PHHY2014MX066575

PATIENT
  Age: 63 Year
  Sex: Male

DRUGS (5)
  1. ACLASTA [Suspect]
     Indication: OSTEOPOROSIS
     Dosage: 1 APPLICATION (5 MG/100 ML) ANNUAL
     Route: 042
     Dates: start: 201309
  2. ACLASTA [Suspect]
     Dosage: 1 APPLICATION (5 MG/100 ML) ANNUAL
     Route: 042
  3. QUAL [Concomitant]
     Indication: BACK PAIN
     Dosage: 1 UKN, DAILY
     Dates: start: 2012
  4. ELOVENT [Concomitant]
     Indication: ASTHMA
     Dosage: 1 UKN, DAILY
  5. SYMBICORT [Concomitant]
     Indication: ASTHMA
     Dosage: 2 UKN DAILY

REACTIONS (7)
  - Dengue fever [Recovered/Resolved]
  - Chills [Recovered/Resolved]
  - Pain of skin [Recovered/Resolved]
  - Eye pain [Recovered/Resolved]
  - Feeling abnormal [Recovered/Resolved]
  - Eye disorder [Recovered/Resolved]
  - Back pain [Unknown]
